FAERS Safety Report 4595626-9 (Version None)
Quarter: 2005Q1

REPORT INFORMATION
  Report Type: 
  Country: None (occurrence: None)
  Receive Date: 20050224
  Receipt Date: 20050202
  Transmission Date: 20050727
  Serious: No
  Sender: FDA-Public Use
  Company Number: 2005-CN-00449CN

PATIENT
  Age: 65 Year
  Sex: Female

DRUGS (2)
  1. AGGRENOX [Suspect]
     Dosage: (1 PER DAY), PO
     Route: 048
  2. DIDROCAL (DIDRONEL PMO ^NORWICH EATON^) [Concomitant]

REACTIONS (6)
  - ARTHRITIS [None]
  - BELLIGERENCE [None]
  - DYSPHONIA [None]
  - LETHARGY [None]
  - RASH [None]
  - SKIN DISCOLOURATION [None]
